FAERS Safety Report 23130918 (Version 2)
Quarter: 2023Q4

REPORT INFORMATION
  Report Type: Spontaneous
  Country: US (occurrence: US)
  Receive Date: 20231031
  Receipt Date: 20231117
  Transmission Date: 20240110
  Serious: No
  Sender: FDA-Public Use
  Company Number: US-BRISTOL-MYERS SQUIBB COMPANY-2023-154381

PATIENT
  Age: 48 Year
  Sex: Male

DRUGS (13)
  1. NULOJIX [Suspect]
     Active Substance: BELATACEPT
     Indication: Renal transplant
     Route: 042
     Dates: start: 20231011, end: 20231011
  2. NULOJIX [Suspect]
     Active Substance: BELATACEPT
     Route: 042
     Dates: start: 20231025, end: 20231025
  3. AMLODIPINE [Concomitant]
     Active Substance: AMLODIPINE BESYLATE
     Indication: Hypertension
     Route: 048
  4. CALCITRIOL [Concomitant]
     Active Substance: CALCITRIOL
     Indication: Product used for unknown indication
     Dosage: 0.25MCG?INDICATION: MBD
     Route: 048
  5. SENSIPAR [Concomitant]
     Active Substance: CINACALCET HYDROCHLORIDE
     Indication: Product used for unknown indication
     Dosage: INDICATION: MBD
     Route: 048
     Dates: start: 20230726
  6. CLONIDINE [Concomitant]
     Active Substance: CLONIDINE
     Indication: Hypertension
     Route: 048
  7. ERGOCALCIFEROL [Concomitant]
     Active Substance: ERGOCALCIFEROL
     Indication: Product used for unknown indication
     Dosage: INDICATION: MBD?DOSE: 50K UNITS
     Route: 048
  8. LABETALOL [Concomitant]
     Active Substance: LABETALOL\LABETALOL HYDROCHLORIDE
     Indication: Hypertension
     Route: 048
     Dates: start: 20230602
  9. MAGOX [Concomitant]
     Indication: Blood magnesium decreased
     Route: 048
     Dates: start: 20230621
  10. MYFORTIC [Concomitant]
     Active Substance: MYCOPHENOLATE SODIUM
     Indication: Transplant
     Route: 048
     Dates: start: 20230508
  11. PREDNISONE [Concomitant]
     Active Substance: PREDNISONE
     Indication: Transplant
     Route: 048
     Dates: start: 20230508
  12. SODIUM BICARBONATE [Concomitant]
     Active Substance: SODIUM BICARBONATE
     Indication: Blood bicarbonate decreased
     Route: 048
     Dates: start: 20230614
  13. TACROLIMUS [Concomitant]
     Active Substance: TACROLIMUS
     Indication: Transplant
     Route: 048
     Dates: start: 20230508

REACTIONS (8)
  - Headache [Recovered/Resolved]
  - Pain [Recovered/Resolved]
  - Chills [Recovered/Resolved]
  - Nausea [Unknown]
  - Malaise [Unknown]
  - Abdominal discomfort [Recovered/Resolved]
  - Back pain [Recovered/Resolved]
  - Fatigue [Recovered/Resolved]

NARRATIVE: CASE EVENT DATE: 20231011
